FAERS Safety Report 5632130-0 (Version None)
Quarter: 2008Q1

REPORT INFORMATION
  Report Type: 
  Country: None (occurrence: None)
  Receive Date: 20080220
  Receipt Date: 20080215
  Transmission Date: 20080703
  Serious: Yes (Hospitalization)
  Sender: FDA-Public Use
  Company Number: US-MERCK-0802USA02730

PATIENT
  Age: 60 Year
  Sex: Male

DRUGS (4)
  1. JANUVIA [Suspect]
     Indication: DIABETES MELLITUS
     Route: 048
     Dates: start: 20071112
  2. METFORMIN [Concomitant]
     Route: 065
  3. LIPITOR [Concomitant]
     Route: 065
  4. CAPOTEN [Concomitant]
     Route: 065

REACTIONS (1)
  - ACUTE LEUKAEMIA [None]
